FAERS Safety Report 20953965 (Version 1)
Quarter: 2022Q2

REPORT INFORMATION
  Report Type: Report from Study
  Country: US (occurrence: None)
  Receive Date: 20220614
  Receipt Date: 20220614
  Transmission Date: 20220721
  Serious: Yes (Hospitalization)
  Sender: FDA-Public Use
  Company Number: 2022A219272

PATIENT
  Sex: Female

DRUGS (1)
  1. TAGRISSO [Suspect]
     Active Substance: OSIMERTINIB
     Indication: Lung neoplasm malignant
     Route: 048
     Dates: start: 20220427

REACTIONS (4)
  - Bronchial secretion retention [Unknown]
  - Asthenia [Not Recovered/Not Resolved]
  - Ageusia [Unknown]
  - Intentional dose omission [Unknown]
